FAERS Safety Report 9077868 (Version 1)
Quarter: 2013Q1

REPORT INFORMATION
  Report Type: Report from Study
  Country: US (occurrence: US)
  Receive Date: 20130130
  Receipt Date: 20130130
  Transmission Date: 20140127
  Serious: No
  Sender: FDA-Public Use
  Company Number: US-ABBOTT-12P-163-0977375-00

PATIENT
  Sex: Female
  Weight: 56.75 kg

DRUGS (6)
  1. HUMIRA [Suspect]
     Indication: RHEUMATOID ARTHRITIS
     Dates: end: 201109
  2. HUMIRA [Suspect]
     Dates: start: 201209
  3. LEUFLUNOMIDE (NON-ABBOTT) [Concomitant]
     Indication: RHEUMATOID ARTHRITIS
  4. NAPROXEN [Concomitant]
     Indication: RHEUMATOID ARTHRITIS
  5. UNKNOWN ANXIETY PILL  (NON-ABBOTT) [Concomitant]
     Indication: ANXIETY
  6. ALBUTEROL  (NON-ABBOTT) [Concomitant]
     Indication: ASTHMA

REACTIONS (4)
  - Unevaluable event [Recovered/Resolved]
  - Tooth infection [Recovered/Resolved]
  - Bronchitis [Recovered/Resolved]
  - Unevaluable event [Not Recovered/Not Resolved]
